FAERS Safety Report 13798981 (Version 1)
Quarter: 2017Q3

REPORT INFORMATION
  Report Type: Spontaneous
  Country: US (occurrence: US)
  Receive Date: 20170727
  Receipt Date: 20170727
  Transmission Date: 20171127
  Serious: No
  Sender: FDA-Public Use
  Company Number: US-JNJFOC-20170520869

PATIENT
  Age: 77 Year
  Sex: Male

DRUGS (6)
  1. ZYRTEC-D [Suspect]
     Active Substance: CETIRIZINE HYDROCHLORIDE\PSEUDOEPHEDRINE HYDROCHLORIDE
     Indication: BLISTER
     Dosage: 1 TABLET, 1 TIME PER DAY
     Route: 048
  2. ZYRTEC-D [Suspect]
     Active Substance: CETIRIZINE HYDROCHLORIDE\PSEUDOEPHEDRINE HYDROCHLORIDE
     Indication: SWELLING FACE
     Dosage: 1 TABLET, 1 TIME PER DAY
     Route: 048
  3. ZYRTEC-D [Suspect]
     Active Substance: CETIRIZINE HYDROCHLORIDE\PSEUDOEPHEDRINE HYDROCHLORIDE
     Indication: OCULAR HYPERAEMIA
     Dosage: 1 TABLET, 1 TIME PER DAY
     Route: 048
  4. ZYRTEC-D [Suspect]
     Active Substance: CETIRIZINE HYDROCHLORIDE\PSEUDOEPHEDRINE HYDROCHLORIDE
     Indication: ALLERGY TO ARTHROPOD BITE
     Dosage: 1 TABLET, 1 TIME PER DAY
     Route: 048
  5. ZYRTEC-D [Suspect]
     Active Substance: CETIRIZINE HYDROCHLORIDE\PSEUDOEPHEDRINE HYDROCHLORIDE
     Indication: EYE SWELLING
     Dosage: 1 TABLET, 1 TIME PER DAY
     Route: 048
  6. ZYRTEC-D [Suspect]
     Active Substance: CETIRIZINE HYDROCHLORIDE\PSEUDOEPHEDRINE HYDROCHLORIDE
     Indication: URTICARIA
     Dosage: 1 TABLET, 1 TIME PER DAY
     Route: 048

REACTIONS (2)
  - Product use in unapproved indication [Unknown]
  - Therapeutic response unexpected [Unknown]
